FAERS Safety Report 16904743 (Version 1)
Quarter: 2019Q4

REPORT INFORMATION
  Report Type: Spontaneous
  Country: US (occurrence: US)
  Receive Date: 20191010
  Receipt Date: 20191010
  Transmission Date: 20200122
  Serious: No
  Sender: FDA-Public Use
  Company Number: US-ASTRAZENECA-2019SF30388

PATIENT
  Sex: Female

DRUGS (3)
  1. PREDNISONE. [Concomitant]
     Active Substance: PREDNISONE
  2. STEROID SHOT [Concomitant]
     Active Substance: UNSPECIFIED INGREDIENT
  3. BYETTA [Suspect]
     Active Substance: EXENATIDE
     Dosage: TWICE A DAY FOR 8 MONTHS
     Route: 058

REACTIONS (3)
  - Scar [Unknown]
  - Pruritus [Recovering/Resolving]
  - Rash [Unknown]
